FAERS Safety Report 10461345 (Version 1)
Quarter: 2014Q3

REPORT INFORMATION
  Report Type: Spontaneous
  Country: GB (occurrence: None)
  Receive Date: 20140916
  Receipt Date: 20140916
  Transmission Date: 20150326
  Serious: Yes (Life-Threatening, Hospitalization)
  Sender: FDA-Public Use
  Company Number: GB-017022

PATIENT
  Age: 18 Year
  Sex: Female
  Weight: 72 kg

DRUGS (3)
  1. NORETHISTERONE ACETATE [Concomitant]
     Active Substance: NORETHINDRONE ACETATE
  2. SOMATROPIN (SOMATROPIN) [Suspect]
     Active Substance: SOMATROPIN
     Indication: TURNER^S SYNDROME
     Route: 058
     Dates: start: 201103, end: 201305
  3. NORDITROPIN [Suspect]
     Active Substance: SOMATROPIN
     Indication: TURNER^S SYNDROME
     Dosage: STARTED AT 1.0MG DAILY INCREASING OVER TIME TO 2.0 MG DAILY SCUBCUTANEOUS
     Route: 058
     Dates: start: 20030328, end: 201103

REACTIONS (7)
  - Vasogenic cerebral oedema [None]
  - Tumour haemorrhage [None]
  - Glioblastoma multiforme [None]
  - VIIth nerve paralysis [None]
  - VIth nerve paralysis [None]
  - Tumour necrosis [None]
  - Brain midline shift [None]
